FAERS Safety Report 17543677 (Version 1)
Quarter: 2020Q1

REPORT INFORMATION
  Report Type: Spontaneous
  Country: FR (occurrence: FR)
  Receive Date: 20200316
  Receipt Date: 20200316
  Transmission Date: 20200409
  Serious: Yes (Hospitalization)
  Sender: FDA-Public Use
  Company Number: FR-TEVA-2020-FR-1200289

PATIENT
  Age: 44 Year
  Sex: Female
  Weight: 77 kg

DRUGS (5)
  1. AMOXICILLINE TRIHYDRATEE [Suspect]
     Active Substance: AMOXICILLIN
     Indication: TYMPANOPLASTY
     Route: 048
     Dates: start: 20191216, end: 20191222
  2. GUTRON [Concomitant]
     Active Substance: MIDODRINE
     Indication: MUSCULAR WEAKNESS
     Route: 048
  3. OFLOCET 1,5 MG/0,5 ML, SOLUTION AURICULAIRE EN R?CIPIENT UNIDOSE [Suspect]
     Active Substance: OFLOXACIN
     Indication: TYMPANOPLASTY
     Dosage: FORM STRENGTH: 1.5 MG / 0.5 ML
     Route: 001
     Dates: start: 20191216, end: 20191222
  4. OMEPRAZOLE SODIQUE [Concomitant]
     Indication: PRODUCT USED FOR UNKNOWN INDICATION
     Route: 048
  5. MESTINON [Concomitant]
     Active Substance: PYRIDOSTIGMINE BROMIDE
     Indication: MUSCULAR WEAKNESS
     Route: 048

REACTIONS (1)
  - Myasthenia gravis [Not Recovered/Not Resolved]

NARRATIVE: CASE EVENT DATE: 201912
